FAERS Safety Report 6185932-9 (Version None)
Quarter: 2009Q2

REPORT INFORMATION
  Report Type: 
  Country: None (occurrence: None)
  Receive Date: 20090507
  Receipt Date: 20090422
  Transmission Date: 20091009
  Serious: Yes (Hospitalization)
  Sender: FDA-Public Use
  Company Number: AE-2009-059

PATIENT
  Age: 49 Year
  Sex: Female

DRUGS (6)
  1. FAZACLO ODT [Suspect]
     Indication: SCHIZOPHRENIA, PARANOID TYPE
     Dosage: 100 MG DAILY PO
     Route: 048
     Dates: start: 20090301
  2. BUSPAR [Concomitant]
  3. PAXIL [Concomitant]
  4. SEROQUEL [Concomitant]
  5. NORVASC [Concomitant]
  6. LOTENSIN [Concomitant]

REACTIONS (3)
  - HALLUCINATION, AUDITORY [None]
  - PSYCHIATRIC DECOMPENSATION [None]
  - SUICIDE ATTEMPT [None]
